FAERS Safety Report 8801760 (Version 1)
Quarter: 2012Q4

REPORT INFORMATION
  Report Type: Report from Study
  Country: JP (occurrence: JP)
  Receive Date: 20120921
  Receipt Date: 20120921
  Transmission Date: 20130627
  Serious: Yes (Other)
  Sender: FDA-Public Use
  Company Number: JP-009507513-1209JPN008587

PATIENT
  Age: 65 Year
  Sex: Female
  Weight: 55 kg

DRUGS (5)
  1. PEGINTRON [Suspect]
     Indication: HEPATITIS C
     Dosage: 1.5 Microgram per kilogram, qw
     Route: 058
     Dates: start: 20120703, end: 20120814
  2. REBETOL [Suspect]
     Indication: HEPATITIS C
     Dosage: 600 mg, qd
     Route: 048
     Dates: start: 20120703, end: 20120821
  3. TELAVIC [Suspect]
     Indication: HEPATITIS C
     Dosage: 1500 milligrams per day
     Route: 048
     Dates: start: 20120703, end: 20120821
  4. ALLOPURINOL [Concomitant]
     Indication: HEPATITIS C
     Dosage: UNK, prn
     Dates: start: 20120704, end: 20120821
  5. LOXOPROFEN [Concomitant]
     Indication: HEPATITIS C
     Dosage: UNK, prn
     Route: 048
     Dates: start: 20120704, end: 20120821

REACTIONS (1)
  - Sepsis [Recovering/Resolving]
